FAERS Safety Report 20182510 (Version 1)
Quarter: 2021Q4

REPORT INFORMATION
  Report Type: Spontaneous
  Country: CN (occurrence: None)
  Receive Date: 20211214
  Receipt Date: 20211214
  Transmission Date: 20220303
  Serious: Yes (Other)
  Sender: FDA-Public Use
  Company Number: 2021A867220

PATIENT
  Age: 37 Year
  Sex: Female

DRUGS (2)
  1. OLAPARIB [Suspect]
     Active Substance: OLAPARIB
     Indication: Brain neoplasm
     Route: 048
     Dates: start: 20200415
  2. BEVACIZUMAB [Suspect]
     Active Substance: BEVACIZUMAB
     Dosage: 5 MG/KG,ONCE EVERY 28 DAYS
     Route: 065
     Dates: start: 20200415

REACTIONS (2)
  - Myelosuppression [Unknown]
  - Off label use [Unknown]
